FAERS Safety Report 21134439 (Version 3)
Quarter: 2023Q4

REPORT INFORMATION
  Report Type: Spontaneous
  Country: US (occurrence: US)
  Receive Date: 20220726
  Receipt Date: 20231121
  Transmission Date: 20240110
  Serious: Yes (Other)
  Sender: FDA-Public Use
  Company Number: US-BRISTOL-MYERS SQUIBB COMPANY-2022-077815

PATIENT
  Age: 75 Year
  Sex: Female

DRUGS (1)
  1. ORENCIA [Suspect]
     Active Substance: ABATACEPT
     Indication: Product used for unknown indication
     Dosage: 125MG/ML, FREQ: 1 INJECTION WEEKLY
     Route: 058

REACTIONS (2)
  - Systemic lupus erythematosus [Unknown]
  - Infection [Unknown]
